FAERS Safety Report 8870600 (Version 3)
Quarter: 2012Q4

REPORT INFORMATION
  Report Type: 
  Country: US (occurrence: US)
  Receive Date: 20121029
  Receipt Date: 20121228
  Transmission Date: 20130627
  Serious: Yes (Hospitalization)
  Sender: FDA-Public Use
  Company Number: US-BIOGENIDEC-2012BI046991

PATIENT
  Age: 57 Year
  Sex: Female

DRUGS (17)
  1. AVONEX [Suspect]
     Indication: MULTIPLE SCLEROSIS
     Route: 030
     Dates: start: 19980701, end: 2003
  2. AVONEX [Suspect]
     Indication: MULTIPLE SCLEROSIS
     Route: 030
     Dates: start: 2003
  3. BETASERON [Concomitant]
     Dates: start: 1995
  4. BUPROPION [Concomitant]
     Route: 048
  5. CALCIUM PLUS D [Concomitant]
     Route: 048
  6. EFFEXOR [Concomitant]
     Route: 048
  7. EVISTA [Concomitant]
     Route: 048
  8. FAMOTIDINE [Concomitant]
     Route: 048
  9. FENOFIBRATE [Concomitant]
     Route: 048
  10. REGULAR INSULIN [Concomitant]
     Route: 058
  11. KLONOPIN [Concomitant]
     Route: 048
  12. LANTUS INSULIN [Concomitant]
     Route: 058
  13. LEVOXYL [Concomitant]
     Route: 048
  14. LISINOPRIL [Concomitant]
     Route: 048
  15. METFORMIN [Concomitant]
     Route: 048
  16. PREVACID [Concomitant]
     Route: 048
  17. CARAFATE [Concomitant]
     Route: 048

REACTIONS (6)
  - Fall [Recovered/Resolved]
  - Fracture [Unknown]
  - Upper limb fracture [Recovered/Resolved]
  - Neuropathy peripheral [Not Recovered/Not Resolved]
  - Wrist fracture [Recovered/Resolved]
  - Hand fracture [Recovered/Resolved]
